FAERS Safety Report 17076338 (Version 2)
Quarter: 2019Q4

REPORT INFORMATION
  Report Type: Report from Study
  Country: HU (occurrence: HU)
  Receive Date: 20191126
  Receipt Date: 20191209
  Transmission Date: 20200122
  Serious: Yes (Other)
  Sender: FDA-Public Use
  Company Number: HU-ACTELION-A-CH2019-198510

PATIENT

DRUGS (13)
  1. UPTRAVI [Suspect]
     Active Substance: SELEXIPAG
     Indication: PULMONARY ARTERIAL HYPERTENSION
     Dosage: 400 MCG, BID
     Route: 048
     Dates: start: 201911, end: 20191118
  2. CONTROLOC [Concomitant]
     Active Substance: PANTOPRAZOLE SODIUM
  3. KALIUM [Concomitant]
     Active Substance: POTASSIUM CHLORIDE
  4. FUROSEMID [Concomitant]
     Active Substance: FUROSEMIDE
  5. VEROSPIRON [Concomitant]
     Active Substance: SPIRONOLACTONE
  6. ENTEROL [Concomitant]
  7. CLEXANE [Concomitant]
     Active Substance: ENOXAPARIN SODIUM
  8. MEDROL [Concomitant]
     Active Substance: METHYLPREDNISOLONE
  9. OPSUMIT [Concomitant]
     Active Substance: MACITENTAN
     Indication: PULMONARY ARTERIAL HYPERTENSION
     Dosage: 10 MG, QD
     Route: 048
  10. DILZEM [Concomitant]
     Active Substance: DILTIAZEM
  11. MILURIT [Concomitant]
     Active Substance: ALLOPURINOL
  12. NEBILET [Concomitant]
     Active Substance: NEBIVOLOL
  13. UPTRAVI [Suspect]
     Active Substance: SELEXIPAG
     Dosage: UNK
     Route: 048
     Dates: start: 20191002, end: 201911

REACTIONS (2)
  - Urticaria [Recovering/Resolving]
  - Pruritus [Recovering/Resolving]
